FAERS Safety Report 17511033 (Version 3)
Quarter: 2022Q1

REPORT INFORMATION
  Report Type: Report from Study
  Country: US (occurrence: US)
  Receive Date: 20200306
  Receipt Date: 20220215
  Transmission Date: 20220423
  Serious: No
  Sender: FDA-Public Use
  Company Number: US-HARMONY BIOSCIENCES-2019HMY00046

PATIENT
  Sex: Female
  Weight: 56.689 kg

DRUGS (16)
  1. WAKIX [Suspect]
     Active Substance: PITOLISANT HYDROCHLORIDE
     Indication: Narcolepsy
     Dosage: 8.9 MG, 1X/DAY
     Route: 048
     Dates: start: 201911, end: 201912
  2. WAKIX [Suspect]
     Active Substance: PITOLISANT HYDROCHLORIDE
     Indication: Narcolepsy
     Dosage: 17.8 MG OR 35.6 MG, UNK
     Route: 048
     Dates: start: 201912
  3. WAKIX [Suspect]
     Active Substance: PITOLISANT HYDROCHLORIDE
     Dosage: 35.6 MG, 1X/DAY
     Route: 048
  4. METOPROLOL [Concomitant]
     Active Substance: METOPROLOL
  5. AZELASTINE [Concomitant]
     Active Substance: AZELASTINE
  6. FLONASE [Concomitant]
     Active Substance: FLUTICASONE PROPIONATE
  7. MONTELUKAST [Concomitant]
     Active Substance: MONTELUKAST SODIUM
  8. LEVOCETIRIZINE [Concomitant]
     Active Substance: LEVOCETIRIZINE
  9. PEPCID [Concomitant]
     Active Substance: FAMOTIDINE
  10. FLOVENT [Concomitant]
     Active Substance: FLUTICASONE PROPIONATE
  11. UNSPECIFIED RESCUE INHALER [Concomitant]
  12. VITAMIN B12 [Concomitant]
     Active Substance: CYANOCOBALAMIN
  13. VITAMIN D [Concomitant]
     Active Substance: VITAMIN D NOS
     Dosage: 50000 U, 1X/WEEK
  14. VITAMINS [Concomitant]
     Active Substance: VITAMINS
  15. UNSPECIFIED ^REGULAR MEDICATIONS FOR CROHN^S^ [Concomitant]
  16. STELARA [Concomitant]
     Active Substance: USTEKINUMAB

REACTIONS (15)
  - Hypersomnia [Recovering/Resolving]
  - Tremor [Not Recovered/Not Resolved]
  - Paraesthesia [Recovered/Resolved]
  - Tension [Not Recovered/Not Resolved]
  - Abdominal symptom [Recovering/Resolving]
  - Mood swings [Not Recovered/Not Resolved]
  - Crohn^s disease [Recovering/Resolving]
  - Headache [Not Recovered/Not Resolved]
  - Nausea [Recovering/Resolving]
  - Abdominal discomfort [Recovering/Resolving]
  - Therapeutic product effect decreased [Not Recovered/Not Resolved]
  - Asthma [Not Recovered/Not Resolved]
  - Fatigue [Not Recovered/Not Resolved]
  - Stress [Not Recovered/Not Resolved]
  - Depressed mood [Not Recovered/Not Resolved]

NARRATIVE: CASE EVENT DATE: 20190101
